FAERS Safety Report 20152865 (Version 1)
Quarter: 2021Q4

REPORT INFORMATION
  Report Type: Spontaneous
  Country: GR (occurrence: GR)
  Receive Date: 20211206
  Receipt Date: 20211206
  Transmission Date: 20220303
  Serious: No
  Sender: FDA-Public Use
  Company Number: GR-PFIZER INC-2021622679

PATIENT
  Age: 14 Year
  Sex: Male
  Weight: 48 kg

DRUGS (1)
  1. GENOTROPIN [Suspect]
     Active Substance: SOMATROPIN
     Dosage: 0.8 MG FOR 5 DAYS, 1 MG THE 6TH DAY, 1 DAY OFF/WEEK/12 MG PEN
     Dates: start: 20161201

REACTIONS (1)
  - Expired device used [Unknown]

NARRATIVE: CASE EVENT DATE: 20210527
